APPROVED DRUG PRODUCT: POTASSIUM CHLORIDE 30MEQ IN DEXTROSE 5% AND SODIUM CHLORIDE 0.45% IN PLASTIC CONTAINER
Active Ingredient: DEXTROSE; POTASSIUM CHLORIDE; SODIUM CHLORIDE
Strength: 5GM/100ML;224MG/100ML;450MG/100ML
Dosage Form/Route: INJECTABLE;INJECTION
Application: N018008 | Product #008 | TE Code: AP
Applicant: BAXTER HEALTHCARE CORP
Approved: Apr 28, 1982 | RLD: No | RS: No | Type: RX